FAERS Safety Report 25087122 (Version 1)
Quarter: 2025Q1

REPORT INFORMATION
  Report Type: Spontaneous
  Country: US (occurrence: US)
  Receive Date: 20250318
  Receipt Date: 20250318
  Transmission Date: 20250409
  Serious: No
  Sender: APOTEX
  Company Number: US-APOTEX-2025AP002844

PATIENT
  Sex: Female

DRUGS (14)
  1. IPRATROPIUM BROMIDE [Suspect]
     Active Substance: IPRATROPIUM BROMIDE
     Indication: Seasonal allergy
     Dosage: UNK, TID
     Route: 045
  2. IPRATROPIUM BROMIDE [Suspect]
     Active Substance: IPRATROPIUM BROMIDE
     Indication: Rhinorrhoea
  3. IPRATROPIUM BROMIDE [Suspect]
     Active Substance: IPRATROPIUM BROMIDE
     Indication: Upper-airway cough syndrome
  4. OMEPRAZOLE [Concomitant]
     Active Substance: OMEPRAZOLE
     Indication: Gastrooesophageal reflux disease
     Dosage: 20 MILLIGRAM, QD IN THE MORNING
     Route: 065
  5. OMEPRAZOLE [Concomitant]
     Active Substance: OMEPRAZOLE
     Indication: Dyspepsia
  6. FAMOTIDINE [Concomitant]
     Active Substance: FAMOTIDINE
     Indication: Gastrooesophageal reflux disease
     Route: 065
  7. CANDESARTAN [Concomitant]
     Active Substance: CANDESARTAN
     Indication: Hypertension
     Dosage: 32 MILLIGRAM, QD
     Route: 065
  8. LYSINE [Concomitant]
     Active Substance: LYSINE
     Indication: Aphthous ulcer
     Dosage: 500 MILLIGRAM, BID, (ONE IN THE MORNING AND ONE IN THE AFTERNOON (A TOTAL OF 1000MG))
     Route: 065
  9. DOXEPIN [Concomitant]
     Active Substance: DOXEPIN
     Indication: Insomnia
     Route: 065
  10. BELSOMRA [Concomitant]
     Active Substance: SUVOREXANT
     Indication: Insomnia
     Route: 065
  11. CITRACAL [CALCIUM;COLECALCIFEROL] [Concomitant]
     Indication: Osteoporosis
     Route: 065
  12. BETA GLUCAN [Concomitant]
     Active Substance: BETA GLUCAN
     Indication: Chronic fatigue syndrome
     Dosage: 250 MILLIGRAM, QD
     Route: 065
  13. COENZYME Q10 [Concomitant]
     Active Substance: DIETARY SUPPLEMENT\UBIDECARENONE
     Indication: Restless legs syndrome
     Dosage: 400 MILLIGRAM, QD (AT NIGHT BEFORE BEDTIME )
     Route: 065
  14. ZINC [Concomitant]
     Active Substance: ZINC
     Indication: Ageusia
     Dosage: 15 MILLIGRAM, QD
     Route: 065

REACTIONS (2)
  - Dysgeusia [Not Recovered/Not Resolved]
  - Dry mouth [Not Recovered/Not Resolved]
